FAERS Safety Report 26038308 (Version 3)
Quarter: 2025Q4

REPORT INFORMATION
  Report Type: Spontaneous
  Country: US (occurrence: US)
  Receive Date: 20251113
  Receipt Date: 20251203
  Transmission Date: 20260118
  Serious: Yes (Other)
  Sender: NOVARTIS
  Company Number: US-002147023-NVSC2025US171014

PATIENT
  Age: 60 Year
  Sex: Female

DRUGS (1)
  1. SIMULECT [Suspect]
     Active Substance: BASILIXIMAB
     Indication: Acute kidney injury
     Dosage: 20 MG, ONCE  (2ND DOSE)
     Route: 042
     Dates: start: 20251030, end: 20251103

REACTIONS (2)
  - Incorrect route of product administration [Recovered/Resolved]
  - Infusion site extravasation [Recovered/Resolved]

NARRATIVE: CASE EVENT DATE: 20251103
